FAERS Safety Report 8840401 (Version 1)
Quarter: 2012Q4

REPORT INFORMATION
  Report Type: 
  Country: US (occurrence: US)
  Receive Date: 20121015
  Receipt Date: 20121015
  Transmission Date: 20130627
  Serious: Yes (Other)
  Sender: FDA-Public Use
  Company Number: US-ROCHE-1139746

PATIENT
  Sex: Male

DRUGS (4)
  1. PROTROPIN [Suspect]
     Indication: DWARFISM
     Route: 065
     Dates: start: 199512
  2. PROTROPIN [Suspect]
     Indication: FACIODIGITOGENITAL DYSPLASIA
  3. NUTROPIN [Suspect]
     Indication: DWARFISM
     Route: 065
     Dates: start: 1998
  4. NUTROPIN [Suspect]
     Indication: FACIODIGITOGENITAL DYSPLASIA

REACTIONS (1)
  - Convulsion [Unknown]
